FAERS Safety Report 10014531 (Version 1)
Quarter: 2014Q1

REPORT INFORMATION
  Report Type: Spontaneous
  Country: JP (occurrence: JP)
  Receive Date: 20140317
  Receipt Date: 20140317
  Transmission Date: 20141002
  Serious: Yes (Other)
  Sender: FDA-Public Use
  Company Number: JP-ASTELLAS-2014JP002328

PATIENT
  Age: 37 Year
  Sex: Male

DRUGS (6)
  1. PROGRAF [Suspect]
     Indication: PROPHYLAXIS AGAINST GRAFT VERSUS HOST DISEASE
     Route: 065
  2. ATG                                /00575401/ [Concomitant]
     Indication: IMMUNOSUPPRESSANT DRUG THERAPY
     Dosage: UNK
     Route: 065
     Dates: start: 2012
  3. GRANULOCYTE COLONY-STIMULATING FACTOR NOS [Concomitant]
     Indication: IMMUNOSUPPRESSANT DRUG THERAPY
     Dosage: UNK
     Route: 065
     Dates: start: 2012
  4. CICLOSPORIN A [Concomitant]
     Indication: IMMUNOSUPPRESSANT DRUG THERAPY
     Dosage: UNK
     Route: 065
     Dates: start: 2012
  5. CYCLOPHOSPHAMIDE [Concomitant]
     Indication: PREMEDICATION
     Dosage: 300 MG/M2, UNKNOWN/D
     Route: 065
  6. FLUDARABINE [Concomitant]
     Indication: PREMEDICATION
     Dosage: 30 MG/M2, UNKNOWN/D
     Route: 065

REACTIONS (2)
  - Drug ineffective [Unknown]
  - Acute graft versus host disease [Recovering/Resolving]
